FAERS Safety Report 5653344-X (Version None)
Quarter: 2008Q1

REPORT INFORMATION
  Report Type: 
  Country: None (occurrence: None)
  Receive Date: 20080306
  Receipt Date: 20080227
  Transmission Date: 20080703
  Serious: Yes (Disabling)
  Sender: FDA-Public Use
  Company Number: GB-MERCK-0802GBR00113

PATIENT
  Age: 68 Year
  Sex: Male

DRUGS (6)
  1. COSOPT [Suspect]
     Indication: GLAUCOMA
     Route: 047
     Dates: start: 20070801, end: 20071201
  2. ASPIRIN [Concomitant]
     Route: 048
  3. BENDROFLUMETHIAZIDE [Concomitant]
     Route: 048
  4. RAMIPRIL [Concomitant]
     Route: 048
  5. SIMVASTATIN [Concomitant]
     Route: 048
  6. LATANOPROST [Concomitant]
     Route: 047
     Dates: start: 20071001

REACTIONS (3)
  - BRONCHOSPASM [None]
  - COUGH [None]
  - WHEEZING [None]
